FAERS Safety Report 5727928-4 (Version None)
Quarter: 2008Q2

REPORT INFORMATION
  Report Type: 
  Country: None (occurrence: None)
  Receive Date: 20080505
  Receipt Date: 20080423
  Transmission Date: 20081010
  Serious: Yes (Other)
  Sender: FDA-Public Use
  Company Number: US-PFIZER INC-2008021580

PATIENT
  Sex: Female

DRUGS (14)
  1. LYRICA [Suspect]
     Indication: HERPES ZOSTER
     Dates: start: 20080101, end: 20080101
  2. SITAGLIPTIN [Suspect]
     Indication: DIABETES MELLITUS
     Dates: start: 20080416, end: 20080417
  3. GABAPENTIN [Suspect]
  4. VICODIN [Concomitant]
  5. ZESTRIL [Concomitant]
  6. NOVOLOG [Concomitant]
  7. VALTREX [Concomitant]
  8. AMARYL [Concomitant]
  9. ZANTAC [Concomitant]
  10. DONNATAL [Concomitant]
  11. ALPRAZOLAM [Concomitant]
  12. PRAVASTATIN [Concomitant]
  13. LUMIGAN [Concomitant]
     Route: 047
  14. LORTAB [Concomitant]

REACTIONS (9)
  - ABDOMINAL PAIN UPPER [None]
  - BLOOD PRESSURE INCREASED [None]
  - BREAST PAIN [None]
  - HEADACHE [None]
  - HERPES ZOSTER [None]
  - MALAISE [None]
  - MUSCULOSKELETAL PAIN [None]
  - NECK PAIN [None]
  - PALPITATIONS [None]
